FAERS Safety Report 4831736-6 (Version None)
Quarter: 2005Q4

REPORT INFORMATION
  Report Type: 
  Country: None (occurrence: None)
  Receive Date: 20051114
  Receipt Date: 20051027
  Transmission Date: 20060501
  Serious: Yes (Hospitalization)
  Sender: FDA-Public Use
  Company Number: ENTC2005-0325

PATIENT
  Sex: Male

DRUGS (1)
  1. STALEVO 100 [Suspect]
     Dosage: SEE IMAGE

REACTIONS (2)
  - ABDOMINAL PAIN UPPER [None]
  - INCORRECT DOSE ADMINISTERED [None]
